FAERS Safety Report 21275207 (Version 1)
Quarter: 2022Q3

REPORT INFORMATION
  Report Type: Spontaneous
  Country: US (occurrence: None)
  Receive Date: 20220831
  Receipt Date: 20220831
  Transmission Date: 20221027
  Serious: No
  Sender: FDA-Public Use
  Company Number: 2022A288187

PATIENT
  Sex: Male
  Weight: 68.9 kg

DRUGS (1)
  1. SYMBICORT [Suspect]
     Active Substance: BUDESONIDE\FORMOTEROL FUMARATE DIHYDRATE
     Indication: Respiratory disorder
     Dosage: 160/4.5 MCG 120 INHALATIONS
     Route: 055

REACTIONS (2)
  - Intentional device use issue [Unknown]
  - Device malfunction [Unknown]
